FAERS Safety Report 5000548-5 (Version None)
Quarter: 2006Q2

REPORT INFORMATION
  Report Type: 
  Country: None (occurrence: None)
  Receive Date: 20060512
  Receipt Date: 20050921
  Transmission Date: 20061013
  Serious: Yes (Death, Other)
  Sender: FDA-Public Use
  Company Number: US-BRISTOL-MYERS SQUIBB COMPANY-13117619

PATIENT
  Age: 8 Year
  Sex: Male

DRUGS (13)
  1. CYTOXAN [Suspect]
     Indication: MEDULLOBLASTOMA
     Dates: start: 20050425, end: 20050425
  2. THALOMID [Suspect]
     Indication: MEDULLOBLASTOMA
     Route: 048
     Dates: start: 20050211, end: 20050524
  3. VINCRISTINE [Suspect]
     Indication: MEDULLOBLASTOMA
     Dates: start: 20050425, end: 20050425
  4. NEURONTIN [Concomitant]
  5. MEGACE [Concomitant]
  6. NEUPOGEN [Concomitant]
  7. FLUCONAZOLE [Concomitant]
  8. EPOGEN [Concomitant]
  9. POTASSIUM CHLORIDE [Concomitant]
  10. FOSAMAX [Concomitant]
  11. ANTIBIOTICS [Concomitant]
  12. PLATELETS [Concomitant]
  13. RED BLOOD CELLS [Concomitant]

REACTIONS (3)
  - INFECTION [None]
  - MALIGNANT NEOPLASM PROGRESSION [None]
  - PANCYTOPENIA [None]
